FAERS Safety Report 9418613 (Version 1)
Quarter: 2013Q3

REPORT INFORMATION
  Report Type: Report from Study
  Country: ID (occurrence: ID)
  Receive Date: 20130725
  Receipt Date: 20130725
  Transmission Date: 20140515
  Serious: Yes (Death)
  Sender: FDA-Public Use
  Company Number: ID-ROCHE-1252530

PATIENT
  Age: 52 Year
  Sex: Female
  Weight: 50 kg

DRUGS (5)
  1. AVASTIN [Suspect]
     Indication: COLORECTAL CANCER METASTATIC
     Route: 041
     Dates: start: 20120701
  2. AVASTIN [Suspect]
     Route: 065
     Dates: start: 20120906
  3. LEUCOVORIN [Concomitant]
     Indication: COLORECTAL CANCER METASTATIC
  4. 5-FU [Concomitant]
     Indication: COLORECTAL CANCER METASTATIC
  5. IRINOTECAN [Concomitant]
     Indication: COLORECTAL CANCER METASTATIC

REACTIONS (1)
  - Death [Fatal]
